FAERS Safety Report 9398348 (Version 1)
Quarter: 2013Q3

REPORT INFORMATION
  Report Type: Spontaneous
  Country: US (occurrence: US)
  Receive Date: 20130712
  Receipt Date: 20130712
  Transmission Date: 20140515
  Serious: No
  Sender: FDA-Public Use
  Company Number: US-GLAXOSMITHKLINE-A1007132A

PATIENT
  Age: 9 Year
  Sex: Male

DRUGS (2)
  1. FLOVENT [Suspect]
     Indication: COUGH
     Dosage: 1PUFF TWICE PER DAY
     Route: 055
     Dates: start: 20121228, end: 20121230
  2. NO CONCURRENT MEDICATION [Concomitant]

REACTIONS (2)
  - Cough [Unknown]
  - Rash [Recovered/Resolved]
